FAERS Safety Report 7280491-1 (Version None)
Quarter: 2011Q1

REPORT INFORMATION
  Report Type: 
  Country: None (occurrence: None)
  Receive Date: 20110208
  Receipt Date: 20110203
  Transmission Date: 20110831
  Serious: Yes (Hospitalization)
  Sender: FDA-Public Use
  Company Number: BR-ROCHE-757704

PATIENT
  Sex: Female
  Weight: 84.4 kg

DRUGS (15)
  1. CALCIUM [Concomitant]
     Indication: OSTEOPOROSIS
     Dates: start: 19860101
  2. HIDRION [Concomitant]
  3. PANTOPRAZOL [Concomitant]
  4. BONIVA [Concomitant]
  5. PARACETAMOL [Concomitant]
  6. TOCILIZUMAB [Suspect]
     Indication: RHEUMATOID ARTHRITIS
     Dosage: FORM: INFUSION
     Route: 065
     Dates: start: 20100701, end: 20110101
  7. RITUXIMAB [Suspect]
     Indication: RHEUMATOID ARTHRITIS
     Dosage: FORM: INFUSION
     Route: 065
     Dates: start: 20081201
  8. CODEINE SULFATE [Concomitant]
  9. TYLEX [Concomitant]
  10. ALPRAZOLAM [Concomitant]
  11. OSCAL [Concomitant]
  12. ROCALTROL [Concomitant]
  13. OSTEONUTRI [Concomitant]
  14. HYZAAR (HYDROCHLOROTHIAZIDE/LOSARTAN) [Concomitant]
     Dosage: DOSE: 50 MG + 12.5 MG
  15. DOMPERIDONE [Concomitant]

REACTIONS (9)
  - THERAPEUTIC RESPONSE DECREASED [None]
  - HAEMORRHAGE [None]
  - EAR PRURITUS [None]
  - PAIN [None]
  - HYPERTENSION [None]
  - PRURITUS [None]
  - CHILLS [None]
  - ARTHROPATHY [None]
  - WHITE BLOOD CELL COUNT DECREASED [None]
